FAERS Safety Report 7563182-9 (Version None)
Quarter: 2011Q2

REPORT INFORMATION
  Report Type: 
  Country: None (occurrence: None)
  Receive Date: 20110622
  Receipt Date: 20110613
  Transmission Date: 20111010
  Serious: No
  Sender: FDA-Public Use
  Company Number: US-B.I. PHARMACEUTICALS,INC./RIDGEFIELD-2011-BP-15265BP

PATIENT
  Age: 74 Year
  Sex: Male

DRUGS (3)
  1. PRADAXA [Suspect]
     Dosage: 150 MG
     Dates: start: 20110601
  2. MULTAQ [Suspect]
  3. PRADAXA [Suspect]
     Dosage: 300 MG
     Dates: end: 20110601

REACTIONS (3)
  - CARDIOVERSION [None]
  - INTERNATIONAL NORMALISED RATIO ABNORMAL [None]
  - HAEMATURIA [None]
